FAERS Safety Report 6494218-4 (Version None)
Quarter: 2009Q4

REPORT INFORMATION
  Report Type: 
  Country: None (occurrence: None)
  Receive Date: 20091214
  Receipt Date: 20090217
  Transmission Date: 20100525
  Serious: No
  Sender: FDA-Public Use
  Company Number: US-BRISTOL-MYERS SQUIBB COMPANY-14482236

PATIENT
  Age: 11 Year
  Sex: Male

DRUGS (3)
  1. ABILIFY [Suspect]
     Indication: AGGRESSION
     Dosage: INITIATED WITH 2 MG DAILY INCREASED TO 5MG DAILY, THEN TO 10MG DAILY.DURATION:3-5 WKS
  2. ABILIFY [Suspect]
     Indication: AGITATION
     Dosage: INITIATED WITH 2 MG DAILY INCREASED TO 5MG DAILY, THEN TO 10MG DAILY.DURATION:3-5 WKS
  3. ABILIFY [Suspect]
     Indication: AFFECTIVE DISORDER
     Dosage: INITIATED WITH 2 MG DAILY INCREASED TO 5MG DAILY, THEN TO 10MG DAILY.DURATION:3-5 WKS

REACTIONS (2)
  - ANGER [None]
  - VISION BLURRED [None]
